FAERS Safety Report 14252634 (Version 1)
Quarter: 2017Q4

REPORT INFORMATION
  Report Type: Spontaneous
  Country: US (occurrence: US)
  Receive Date: 20171205
  Receipt Date: 20171205
  Transmission Date: 20180321
  Serious: No
  Sender: FDA-Public Use
  Company Number: US-TEVA-774705ACC

PATIENT
  Sex: Female

DRUGS (3)
  1. BUDESONIDE. [Suspect]
     Active Substance: BUDESONIDE
     Route: 065
  2. BUDESONIDE. [Suspect]
     Active Substance: BUDESONIDE
     Indication: DYSPNOEA
     Route: 065
  3. PREDNISOLONE. [Concomitant]
     Active Substance: PREDNISOLONE
     Dosage: 5 MILLIGRAM DAILY;

REACTIONS (2)
  - Joint swelling [Recovered/Resolved]
  - Adverse event [Recovered/Resolved]
